FAERS Safety Report 5974851-6 (Version None)
Quarter: 2008Q4

REPORT INFORMATION
  Report Type: 
  Country: None (occurrence: None)
  Receive Date: 20081202
  Receipt Date: 20081127
  Transmission Date: 20090506
  Serious: Yes (Hospitalization)
  Sender: FDA-Public Use
  Company Number: NL-PFIZER INC-2008100961

PATIENT
  Sex: Female
  Weight: 63 kg

DRUGS (12)
  1. ZAVEDOS POWDER, STERILE [Suspect]
     Indication: ACUTE MYELOID LEUKAEMIA
     Route: 042
     Dates: start: 20081013, end: 20081013
  2. CYTOSAR-U [Suspect]
     Indication: ACUTE MYELOID LEUKAEMIA
     Route: 042
     Dates: start: 20081013, end: 20081013
  3. TRAMADOL HCL [Concomitant]
     Route: 048
  4. ORGAMETRIL [Concomitant]
     Route: 048
  5. CIPROFLOXACIN [Concomitant]
     Route: 048
  6. FLUCONAZOLE [Concomitant]
     Route: 048
  7. METOCLOPRAMIDE [Concomitant]
     Route: 048
  8. LORAZEPAM [Concomitant]
     Route: 048
  9. OXAZEPAM [Concomitant]
     Route: 048
  10. ALLOPURINOL [Concomitant]
     Route: 048
  11. TIENAM [Concomitant]
     Route: 042
  12. KONAKION [Concomitant]
     Route: 048

REACTIONS (1)
  - RHABDOMYOLYSIS [None]
